FAERS Safety Report 4320798-0 (Version None)
Quarter: 2004Q1

REPORT INFORMATION
  Report Type: 
  Country: None (occurrence: None)
  Receive Date: 20040318
  Receipt Date: 20040312
  Transmission Date: 20041129
  Serious: Yes (Hospitalization, Other)
  Sender: FDA-Public Use
  Company Number: FRWYE640615MAR04

PATIENT
  Age: 32 Year
  Sex: Female

DRUGS (3)
  1. EFFEXOR [Suspect]
     Indication: ANXIETY
     Dosage: 100 MG DAILY; ORAL,SEVERAL WEEKS
     Route: 048
     Dates: start: 20040101, end: 20040101
  2. EFFEXOR [Suspect]
     Indication: DEPRESSION
     Dosage: 100 MG DAILY; ORAL,SEVERAL WEEKS
     Route: 048
     Dates: start: 20040101, end: 20040101
  3. ANXIOLYTICS [Concomitant]

REACTIONS (5)
  - ANXIETY [None]
  - CONDITION AGGRAVATED [None]
  - DEPERSONALISATION [None]
  - INSOMNIA [None]
  - SUICIDAL IDEATION [None]
